FAERS Safety Report 9193144 (Version 1)
Quarter: 2013Q1

REPORT INFORMATION
  Report Type: Spontaneous
  Country: US (occurrence: US)
  Receive Date: 20130327
  Receipt Date: 20130327
  Transmission Date: 20140127
  Serious: No
  Sender: FDA-Public Use
  Company Number: US-PFIZER INC-2013098762

PATIENT
  Age: 75 Year
  Sex: Female

DRUGS (3)
  1. CELEBREX [Suspect]
     Indication: ARTHRITIS
     Dosage: 200 MG DAILY
  2. CELEBREX [Suspect]
     Dosage: 200MG DAILY
     Dates: start: 201303, end: 20130325
  3. TOPROL [Concomitant]
     Indication: HYPERTENSION
     Dosage: UNK

REACTIONS (2)
  - Renal pain [Unknown]
  - Abdominal pain lower [Unknown]
